FAERS Safety Report 5311616-2 (Version None)
Quarter: 2007Q2

REPORT INFORMATION
  Report Type: 
  Country: None (occurrence: None)
  Receive Date: 20070430
  Receipt Date: 20070427
  Transmission Date: 20071010
  Serious: Yes (Hospitalization)
  Sender: FDA-Public Use
  Company Number: RO-GENENTECH-238733

PATIENT
  Age: 49 Year
  Sex: Female

DRUGS (5)
  1. MABTHERA [Suspect]
     Indication: B-CELL LYMPHOMA
     Dosage: 600 MG, UNK
     Route: 042
     Dates: start: 20070213, end: 20070301
  2. CYCLOPHOSPHAMIDE [Concomitant]
     Indication: B-CELL LYMPHOMA
  3. DOXORUBICIN HCL [Concomitant]
     Indication: B-CELL LYMPHOMA
  4. PREDNISONE TAB [Concomitant]
     Indication: B-CELL LYMPHOMA
  5. VINCRISTINE [Concomitant]
     Indication: B-CELL LYMPHOMA

REACTIONS (1)
  - TRANSAMINASES INCREASED [None]
